FAERS Safety Report 7125280-3 (Version None)
Quarter: 2010Q4

REPORT INFORMATION
  Report Type: 
  Country: None (occurrence: None)
  Receive Date: 20101112
  Receipt Date: 20101015
  Transmission Date: 20110411
  Serious: Yes (Hospitalization)
  Sender: FDA-Public Use
  Company Number: 10-416

PATIENT
  Age: 39 Year
  Sex: Female

DRUGS (2)
  1. IBUPROFEN [Suspect]
     Indication: PAIN
     Dosage: 400 MG, 3X DAILY, ORAL
     Route: 048
     Dates: start: 20070709, end: 20070716
  2. AMOXICILLIN [Concomitant]

REACTIONS (1)
  - DUODENAL ULCER [None]
